FAERS Safety Report 21333201 (Version 1)
Quarter: 2022Q3

REPORT INFORMATION
  Report Type: Spontaneous
  Country: US (occurrence: US)
  Receive Date: 20220914
  Receipt Date: 20220914
  Transmission Date: 20221026
  Serious: Yes (Death, Other)
  Sender: FDA-Public Use
  Company Number: US-SA-SAC20220913001203

PATIENT

DRUGS (3)
  1. ZANTAC [Suspect]
     Active Substance: RANITIDINE HYDROCHLORIDE
     Dosage: UNK (PRESCRIPTION ZANTAC)
     Route: 065
     Dates: start: 1983, end: 2009
  2. ZANTAC [Suspect]
     Active Substance: RANITIDINE HYDROCHLORIDE
     Dosage: UNK (OVER THE COUNTER ZANTAC (RANITIDINE))
     Dates: start: 1997, end: 2009
  3. RANITIDINE HYDROCHLORIDE [Suspect]
     Active Substance: RANITIDINE HYDROCHLORIDE
     Dosage: UNK (PRESCRIPTION RANITIDINE)
     Dates: start: 1997, end: 2009

REACTIONS (1)
  - Colorectal cancer [Fatal]
